FAERS Safety Report 8146865-1 (Version None)
Quarter: 2012Q1

REPORT INFORMATION
  Report Type: 
  Country: None (occurrence: None)
  Receive Date: 20120217
  Receipt Date: 20120213
  Transmission Date: 20120608
  Serious: Yes (Death, Hospitalization, Other)
  Sender: FDA-Public Use
  Company Number: JP-ABBOTT-12P-087-0895947-00

PATIENT
  Sex: Female
  Weight: 56.5 kg

DRUGS (12)
  1. LOXOPROFEN SODIUM HYDRATE [Concomitant]
     Indication: RHEUMATOID ARTHRITIS
     Route: 048
     Dates: start: 20071025, end: 20111212
  2. CANDESARTAN CILEXETIL [Concomitant]
     Indication: HYPERTENSION
     Route: 048
     Dates: start: 20080410, end: 20111212
  3. CILOSTAZOL [Concomitant]
     Indication: PERIPHERAL ARTERIAL OCCLUSIVE DISEASE
     Route: 048
     Dates: start: 20080410, end: 20111212
  4. MECOBALAMIN [Concomitant]
     Indication: PERIPHERAL ARTERIAL OCCLUSIVE DISEASE
     Route: 048
     Dates: start: 20080828, end: 20111212
  5. FERROUS FUMARATE [Concomitant]
     Indication: ANAEMIA
     Route: 048
     Dates: start: 20111011, end: 20111212
  6. PREDNISOLONE [Concomitant]
     Indication: RHEUMATOID ARTHRITIS
     Route: 048
     Dates: start: 20071122, end: 20111212
  7. FUROSEMIDE [Concomitant]
     Indication: ARRHYTHMIA
     Route: 048
     Dates: start: 20080410, end: 20111212
  8. REBAMIPIDE [Concomitant]
     Indication: GASTRITIS PROPHYLAXIS
     Route: 048
     Dates: start: 20080214, end: 20111212
  9. SITAGLIPTIN PHOSPHATE HYDRATE [Concomitant]
     Indication: DIABETES MELLITUS
     Route: 048
     Dates: start: 20100803, end: 20111212
  10. HUMIRA [Suspect]
     Indication: RHEUMATOID ARTHRITIS
     Route: 058
     Dates: start: 20090622, end: 20111108
  11. ETIZOLAM [Concomitant]
     Indication: RHEUMATOID ARTHRITIS
     Route: 048
     Dates: start: 20080410, end: 20111212
  12. VERAPAMIL HYDROCHLORIDE [Concomitant]
     Indication: ARRHYTHMIA
     Route: 048
     Dates: start: 20080410, end: 20111212

REACTIONS (9)
  - URINARY TRACT INFECTION [None]
  - DISSEMINATED INTRAVASCULAR COAGULATION [None]
  - CONTUSION [None]
  - PAIN [None]
  - FALL [None]
  - CANDIDURIA [None]
  - SEPSIS [None]
  - CARDIAC ARREST [None]
  - STAPHYLOCOCCAL BACTERAEMIA [None]
